FAERS Safety Report 7879884-0 (Version None)
Quarter: 2011Q4

REPORT INFORMATION
  Report Type: 
  Country: None (occurrence: None)
  Receive Date: 20111101
  Receipt Date: 20111028
  Transmission Date: 20120403
  Serious: Yes (Hospitalization, Other)
  Sender: FDA-Public Use
  Company Number: US-MERCK-1108USA01569

PATIENT
  Age: 55 Year
  Sex: Female

DRUGS (1)
  1. FOSAMAX [Suspect]
     Indication: OSTEOPOROSIS
     Route: 048
     Dates: start: 19950101, end: 20090101

REACTIONS (50)
  - FEMUR FRACTURE [None]
  - HYPOKALAEMIA [None]
  - PNEUMONIA [None]
  - GASTROENTERITIS [None]
  - FATIGUE [None]
  - ESSENTIAL TREMOR [None]
  - PANIC ATTACK [None]
  - LACERATION [None]
  - DEPRESSION [None]
  - STRESS URINARY INCONTINENCE [None]
  - AUTONOMIC NEUROPATHY [None]
  - CYSTOCELE [None]
  - FRACTURE NONUNION [None]
  - OSTEOARTHRITIS [None]
  - SCOLIOSIS [None]
  - SCIATICA [None]
  - RHEUMATOID ARTHRITIS [None]
  - FIBROMYALGIA [None]
  - ARTHRITIS [None]
  - ANXIETY [None]
  - CHRONIC OBSTRUCTIVE PULMONARY DISEASE [None]
  - FALL [None]
  - SPONDYLITIS [None]
  - EMPHYSEMA [None]
  - HYPERTENSION [None]
  - BACK PAIN [None]
  - BACK DISORDER [None]
  - MALIGNANT HYPERTENSION [None]
  - RIB FRACTURE [None]
  - UPPER-AIRWAY COUGH SYNDROME [None]
  - TOOTH ABSCESS [None]
  - DRUG HYPERSENSITIVITY [None]
  - RESTLESS LEGS SYNDROME [None]
  - FOOT FRACTURE [None]
  - ARTERIOSCLEROSIS [None]
  - SLEEP PHASE RHYTHM DISTURBANCE [None]
  - DIARRHOEA [None]
  - COUGH [None]
  - ANKLE FRACTURE [None]
  - ASTHMA [None]
  - RESPIRATORY DISORDER [None]
  - IMPAIRED HEALING [None]
  - DYSPHAGIA [None]
  - NEUROPATHY PERIPHERAL [None]
  - HILAR LYMPHADENOPATHY [None]
  - CONTUSION [None]
  - CELLULITIS [None]
  - LUNG NEOPLASM [None]
  - VITAMIN D DEFICIENCY [None]
  - GIARDIASIS [None]
